FAERS Safety Report 16024717 (Version 1)
Quarter: 2019Q1

REPORT INFORMATION
  Report Type: Spontaneous
  Country: IE (occurrence: IE)
  Receive Date: 20190301
  Receipt Date: 20190301
  Transmission Date: 20190418
  Serious: Yes (Other)
  Sender: FDA-Public Use
  Company Number: IE-PFIZER INC-2019045969

PATIENT
  Age: 28 Year
  Sex: Female

DRUGS (3)
  1. SULFASALAZINE. [Suspect]
     Active Substance: SULFASALAZINE
     Indication: ENTHESOPATHY
     Dosage: 2MG PER DAY
     Dates: start: 200703
  2. HUMIRA [Suspect]
     Active Substance: ADALIMUMAB
     Indication: PLANTAR FASCIITIS
     Dosage: UNK
     Dates: start: 2016
  3. ENBREL [Suspect]
     Active Substance: ETANERCEPT
     Indication: ANKYLOSING SPONDYLITIS
     Dosage: 50MG PER WEEK
     Route: 058
     Dates: start: 200801, end: 20181205

REACTIONS (5)
  - Psoriatic arthropathy [Not Recovered/Not Resolved]
  - Psoriasis [Unknown]
  - Palmoplantar pustulosis [Not Recovered/Not Resolved]
  - Plantar fasciitis [Unknown]
  - Spinal pain [Unknown]

NARRATIVE: CASE EVENT DATE: 2016
